FAERS Safety Report 24163885 (Version 2)
Quarter: 2024Q3

REPORT INFORMATION
  Report Type: Spontaneous
  Country: JP (occurrence: JP)
  Receive Date: 20240801
  Receipt Date: 20240807
  Transmission Date: 20241017
  Serious: Yes (Other)
  Sender: GUERBET
  Company Number: JP-GUERBETG_JAPAN-JP-20240100

PATIENT
  Age: 35 Year
  Sex: Female

DRUGS (1)
  1. LIPIODOL [Suspect]
     Active Substance: ETHIODIZED OIL
     Indication: Hysterosalpingogram

REACTIONS (3)
  - Polyhydramnios [Recovering/Resolving]
  - Hypothyroidism [Unknown]
  - Maternal exposure before pregnancy [Unknown]
